FAERS Safety Report 9703412 (Version 1)
Quarter: 2013Q4

REPORT INFORMATION
  Report Type: Report from Study
  Country: TH (occurrence: TH)
  Receive Date: 20131122
  Receipt Date: 20131122
  Transmission Date: 20140711
  Serious: Yes (Death, Other)
  Sender: FDA-Public Use
  Company Number: PHHY2013TH133367

PATIENT
  Age: 79 Year
  Sex: Male

DRUGS (1)
  1. ZOMETA [Suspect]
     Indication: METASTASES TO BONE
     Dosage: 4 MG/ TIME/MONTH
     Route: 041

REACTIONS (4)
  - Infection [Fatal]
  - Decubitus ulcer [Fatal]
  - Fall [Unknown]
  - Gait disturbance [Unknown]
